FAERS Safety Report 25240942 (Version 1)
Quarter: 2025Q2

REPORT INFORMATION
  Report Type: Spontaneous
  Country: US (occurrence: US)
  Receive Date: 20250425
  Receipt Date: 20250425
  Transmission Date: 20250716
  Serious: No
  Sender: CALLIDITAS THERAPEUTICS AB
  Company Number: US-Calliditas-2025CAL00470

PATIENT
  Age: 58 Year
  Sex: Male

DRUGS (13)
  1. TARPEYO [Suspect]
     Active Substance: BUDESONIDE
     Indication: IgA nephropathy
     Route: 048
     Dates: start: 20250128
  2. FARXIGA [Concomitant]
     Active Substance: DAPAGLIFLOZIN PROPANEDIOL
  3. ELIQUIS [Concomitant]
     Active Substance: APIXABAN
  4. VICODIN [Concomitant]
     Active Substance: ACETAMINOPHEN\HYDROCODONE BITARTRATE
  5. CLARITIN [Concomitant]
     Active Substance: LORATADINE
  6. GABAPENTIN [Concomitant]
     Active Substance: GABAPENTIN
  7. ALLOPURINOL [Concomitant]
     Active Substance: ALLOPURINOL
  8. FOLIC ACID [Concomitant]
     Active Substance: FOLIC ACID
  9. LISINOPRIL [Concomitant]
     Active Substance: LISINOPRIL
  10. KRILL OIL [Concomitant]
     Active Substance: DIETARY SUPPLEMENT\KRILL OIL
  11. HERBALS\TURMERIC [Concomitant]
     Active Substance: HERBALS\TURMERIC
  12. VITAMIN D3 [Concomitant]
     Active Substance: CHOLECALCIFEROL
  13. OMEPRAZOLE [Concomitant]
     Active Substance: OMEPRAZOLE

REACTIONS (11)
  - Weight increased [Not Recovered/Not Resolved]
  - Headache [Not Recovered/Not Resolved]
  - Rash papular [Not Recovered/Not Resolved]
  - Peripheral swelling [Not Recovered/Not Resolved]
  - Cushingoid [Not Recovered/Not Resolved]
  - Muscle spasms [Not Recovered/Not Resolved]
  - Quality of life decreased [Not Recovered/Not Resolved]
  - Increased appetite [Unknown]
  - Diarrhoea [Unknown]
  - Product residue present [Unknown]
  - Fatigue [Not Recovered/Not Resolved]

NARRATIVE: CASE EVENT DATE: 20250301
